FAERS Safety Report 9875562 (Version 1)
Quarter: 2014Q1

REPORT INFORMATION
  Report Type: Spontaneous
  Country: FI (occurrence: None)
  Receive Date: 20140204
  Receipt Date: 20140204
  Transmission Date: 20141002
  Serious: Yes (Other)
  Sender: FDA-Public Use
  Company Number: AUR-APL-2014-01188

PATIENT
  Sex: Female

DRUGS (1)
  1. AMOXICILLIN +CLAVULINIC ACID [Suspect]
     Indication: SINUSITIS
     Dates: start: 2011, end: 2011

REACTIONS (1)
  - Meningitis [None]
